FAERS Safety Report 11159026 (Version 1)
Quarter: 2015Q2

REPORT INFORMATION
  Report Type: Other
  Country: US (occurrence: US)
  Receive Date: 20150603
  Receipt Date: 20150603
  Transmission Date: 20150821
  Serious: Yes (Hospitalization, Other)
  Sender: FDA-Public Use
  Company Number: US-ACORDA-ACO_37897_2013

PATIENT
  Sex: Female
  Weight: 99.77 kg

DRUGS (5)
  1. AMANTADINE [Concomitant]
     Active Substance: AMANTADINE
     Indication: PRODUCT USED FOR UNKNOWN INDICATION
     Dosage: 2 DF, IN THE MORNING
     Route: 065
  2. TYLENOL [Concomitant]
     Active Substance: ACETAMINOPHEN
     Indication: PRODUCT USED FOR UNKNOWN INDICATION
     Route: 065
  3. AMPYRA [Suspect]
     Active Substance: DALFAMPRIDINE
     Indication: GAIT DISTURBANCE
     Dosage: 10 MG, BID
     Route: 048
     Dates: end: 20141216
  4. VITAMIN D [Concomitant]
     Active Substance: CHOLECALCIFEROL
     Indication: PRODUCT USED FOR UNKNOWN INDICATION
     Dosage: 8000 IU,
     Route: 065
  5. TECFIDERA [Concomitant]
     Active Substance: DIMETHYL FUMARATE
     Indication: PRODUCT USED FOR UNKNOWN INDICATION
     Dosage: 100 MG, BID
     Route: 065

REACTIONS (14)
  - Blood pressure increased [Recovering/Resolving]
  - Speech disorder [Unknown]
  - Movement disorder [Unknown]
  - Urinary tract infection [Recovered/Resolved]
  - Fatigue [Recovering/Resolving]
  - Multiple sclerosis relapse [Recovered/Resolved]
  - Osteomyelitis [Recovered/Resolved]
  - Skin infection [Recovered/Resolved]
  - Soft tissue infection [Recovered/Resolved]
  - Pain [Recovered/Resolved]
  - Depression [Recovering/Resolving]
  - Immune system disorder [Unknown]
  - Gait disturbance [Unknown]
  - Staphylococcal infection [Recovered/Resolved]
